FAERS Safety Report 5129956-9 (Version None)
Quarter: 2006Q4

REPORT INFORMATION
  Report Type: 
  Country: None (occurrence: None)
  Receive Date: 20061018
  Receipt Date: 20040413
  Transmission Date: 20070319
  Serious: Yes (Hospitalization)
  Sender: FDA-Public Use
  Company Number: FR-BOEHRINGER INGELHEIM PHARMACEUTICALS, INC.-2004-FF-00256FF

PATIENT
  Sex: Male
  Weight: 71 kg

DRUGS (7)
  1. TIPRANAVIR + RITONAVIR CO-ADMIN [Suspect]
     Indication: HIV INFECTION
     Dosage: TPV/RTV 500/200 MG B.I.D.
     Route: 048
     Dates: start: 20040317, end: 20040413
  2. FUZEON [Concomitant]
     Indication: HIV INFECTION
     Route: 058
     Dates: start: 20030923
  3. EMTRIVA [Concomitant]
     Indication: HIV INFECTION
     Route: 048
     Dates: start: 20040317
  4. ALPRAZOLAM [Concomitant]
     Indication: ANXIETY
     Route: 048
     Dates: start: 20031008
  5. VFEND [Concomitant]
     Indication: ORAL CANDIDIASIS
     Route: 048
     Dates: start: 20030924
  6. BACTRIM [Concomitant]
     Dosage: ONE TABLET DAILY
     Route: 048
  7. AZADOSE [Concomitant]
     Route: 048

REACTIONS (6)
  - ESCHERICHIA URINARY TRACT INFECTION [None]
  - FUNGAL OESOPHAGITIS [None]
  - HEPATIC CIRRHOSIS [None]
  - HEPATOMEGALY [None]
  - JAUNDICE [None]
  - SPLENOMEGALY [None]
